FAERS Safety Report 24773236 (Version 2)
Quarter: 2024Q4

REPORT INFORMATION
  Report Type: Report from Study
  Country: US (occurrence: US)
  Receive Date: 20241225
  Receipt Date: 20241227
  Transmission Date: 20250114
  Serious: Yes (Other)
  Sender: JAZZ
  Company Number: US-JAZZ PHARMACEUTICALS-2024-US-024400

PATIENT
  Age: 24 Year
  Sex: Female
  Weight: 63 kg

DRUGS (37)
  1. XYWAV [Suspect]
     Active Substance: CALCIUM OXYBATE\MAGNESIUM OXYBATE\POTASSIUM OXYBATE\SODIUM OXYBATE
     Indication: Narcolepsy
     Dosage: 4.5 GRAM, BID
     Route: 048
  2. XYWAV [Suspect]
     Active Substance: CALCIUM OXYBATE\MAGNESIUM OXYBATE\POTASSIUM OXYBATE\SODIUM OXYBATE
     Indication: Cataplexy
  3. XYWAV [Suspect]
     Active Substance: CALCIUM OXYBATE\MAGNESIUM OXYBATE\POTASSIUM OXYBATE\SODIUM OXYBATE
     Indication: Somnolence
  4. PREGABALIN [Concomitant]
     Active Substance: PREGABALIN
     Indication: Product used for unknown indication
     Dosage: UNK
     Dates: start: 20180101
  5. METOPROLOL TARTRATE [Concomitant]
     Active Substance: METOPROLOL TARTRATE
     Indication: Product used for unknown indication
     Dosage: UNK
     Dates: start: 20210101
  6. NORETHINDRONE [Concomitant]
     Active Substance: NORETHINDRONE
     Indication: Product used for unknown indication
     Dosage: UNK
     Dates: start: 20170101
  7. OXYCODONE HYDROCHLORIDE [Concomitant]
     Active Substance: OXYCODONE HYDROCHLORIDE
     Indication: Product used for unknown indication
     Dosage: UNK
     Dates: start: 20241122
  8. HYDROMORPHONE [Concomitant]
     Active Substance: HYDROMORPHONE
     Indication: Product used for unknown indication
     Dosage: UNK
     Dates: start: 20241210
  9. AIMOVIG [Concomitant]
     Active Substance: ERENUMAB\ERENUMAB-AOOE
  10. BACLOFEN [Concomitant]
     Active Substance: BACLOFEN
  11. BUSPIRONE [Concomitant]
     Active Substance: BUSPIRONE HYDROCHLORIDE
  12. BUTALBITAL, ACETAMINOPHEN, AND CAFFEINE [Concomitant]
     Active Substance: ACETAMINOPHEN\BUTALBITAL\CAFFEINE
  13. CLINDAMYCIN PHOSPHATE [Concomitant]
     Active Substance: CLINDAMYCIN PHOSPHATE
  14. CLONIDINE HYDROCHLORIDE [Concomitant]
     Active Substance: CLONIDINE HYDROCHLORIDE
  15. DIAZEPAM [Concomitant]
     Active Substance: DIAZEPAM
  16. HYDROXYZINE HYDROCHLORIDE [Concomitant]
     Active Substance: HYDROXYZINE HYDROCHLORIDE
  17. KETAMINE [Concomitant]
     Active Substance: KETAMINE
  18. LEVOTHYROXINE [Concomitant]
     Active Substance: LEVOTHYROXINE
  19. MECLIZINE [Concomitant]
     Active Substance: MECLIZINE HYDROCHLORIDE
  20. NALOXONE HYDROCHLORIDE [Concomitant]
     Active Substance: NALOXONE HYDROCHLORIDE
  21. OMEPRAZOLE [Concomitant]
     Active Substance: OMEPRAZOLE
  22. OXYCODONE [Concomitant]
     Active Substance: OXYCODONE
  23. PROMETHAZINE [Concomitant]
     Active Substance: PROMETHAZINE HYDROCHLORIDE
  24. SPIRONOLACTONE [Concomitant]
     Active Substance: SPIRONOLACTONE
  25. SUMATRIPTAN [Concomitant]
     Active Substance: SUMATRIPTAN
  26. UBRELVY [Concomitant]
     Active Substance: UBROGEPANT
  27. ZONISAMIDE [Concomitant]
     Active Substance: ZONISAMIDE
  28. XIFAXAN [Concomitant]
     Active Substance: RIFAXIMIN
  29. SUCRALFATE [Concomitant]
     Active Substance: SUCRALFATE
  30. SEYSARA [Concomitant]
     Active Substance: SARECYCLINE HYDROCHLORIDE
  31. RIZATRIPTAN [Concomitant]
     Active Substance: RIZATRIPTAN
  32. ONDANSETRON [Concomitant]
     Active Substance: ONDANSETRON
  33. ONDANSETRON HYDROCHLORIDE [Concomitant]
     Active Substance: ONDANSETRON HYDROCHLORIDE
  34. NYSTOP [Concomitant]
     Active Substance: NYSTATIN
  35. KETOCONAZOLE [Concomitant]
     Active Substance: KETOCONAZOLE
  36. HYOSCYAMINE [Concomitant]
     Active Substance: HYOSCYAMINE
  37. HYDROCORTISONE [Concomitant]
     Active Substance: HYDROCORTISONE

REACTIONS (2)
  - Surgery [Unknown]
  - Postural orthostatic tachycardia syndrome [Unknown]

NARRATIVE: CASE EVENT DATE: 20241001
